FAERS Safety Report 8072159-9 (Version None)
Quarter: 2012Q1

REPORT INFORMATION
  Report Type: 
  Country: None (occurrence: None)
  Receive Date: 20120126
  Receipt Date: 20120118
  Transmission Date: 20120608
  Serious: Yes (Other)
  Sender: FDA-Public Use
  Company Number: US-US-EMD SERONO, INC.-7107975

PATIENT
  Sex: Female

DRUGS (4)
  1. REBIF [Suspect]
     Dates: start: 20110801, end: 20111001
  2. MYCOPHENOLATE MOFETIL (CELLCEPT) [Suspect]
     Indication: MULTIPLE SCLEROSIS
     Dates: end: 20110701
  3. REBIF [Suspect]
     Indication: MULTIPLE SCLEROSIS
     Dates: end: 20110701
  4. MYCOPHENOLATE MOFETIL (CELLCEPT) [Suspect]
     Dates: start: 20110801, end: 20111001

REACTIONS (2)
  - ABORTION SPONTANEOUS [None]
  - FOETAL EXPOSURE DURING PREGNANCY [None]
